FAERS Safety Report 8063792-9 (Version None)
Quarter: 2012Q1

REPORT INFORMATION
  Report Type: 
  Country: None (occurrence: None)
  Receive Date: 20120123
  Receipt Date: 20120112
  Transmission Date: 20120608
  Serious: Yes (Hospitalization, Disabling)
  Sender: FDA-Public Use
  Company Number: US-MERCK-1106USA01811

PATIENT
  Age: 49 Year
  Sex: Female
  Weight: 89 kg

DRUGS (2)
  1. CALCIUM (UNSPECIFIED) AND VITAMIN D (UNSPECIFIED) [Concomitant]
     Route: 065
     Dates: start: 19970101
  2. FOSAMAX [Suspect]
     Indication: OSTEOPENIA
     Route: 048
     Dates: start: 19970101, end: 20100101

REACTIONS (23)
  - HYPERLIPIDAEMIA [None]
  - VISION BLURRED [None]
  - MEDICAL DEVICE COMPLICATION [None]
  - FRACTURE DELAYED UNION [None]
  - FALL [None]
  - FEMUR FRACTURE [None]
  - ANAEMIA [None]
  - ULNAR NERVE INJURY [None]
  - BURSITIS [None]
  - DRUG HYPERSENSITIVITY [None]
  - LOW TURNOVER OSTEOPATHY [None]
  - TOXICITY TO VARIOUS AGENTS [None]
  - ARTHRALGIA [None]
  - WEIGHT FLUCTUATION [None]
  - DYSPEPSIA [None]
  - ABDOMINAL PAIN [None]
  - TOOTH FRACTURE [None]
  - TEETH BRITTLE [None]
  - VITAMIN D DEFICIENCY [None]
  - RADIUS FRACTURE [None]
  - CARPAL TUNNEL DECOMPRESSION [None]
  - BREAST CANCER [None]
  - BONE LOSS [None]
